FAERS Safety Report 24661512 (Version 2)
Quarter: 2025Q3

REPORT INFORMATION
  Report Type: Report from Study
  Country: JP (occurrence: JP)
  Receive Date: 20241125
  Receipt Date: 20250829
  Transmission Date: 20251020
  Serious: Yes (Death)
  Sender: SHIONOGI
  Company Number: JP-shionogi-202400002527

PATIENT
  Age: 83 Year
  Sex: Male

DRUGS (14)
  1. CEFIDEROCOL [Suspect]
     Active Substance: CEFIDEROCOL
     Indication: Large intestine perforation
     Route: 041
     Dates: start: 20241112, end: 20241112
  2. UNSPECIFIED INGREDIENT [Concomitant]
     Active Substance: UNSPECIFIED INGREDIENT
     Indication: Product used for unknown indication
     Route: 065
  3. UNSPECIFIED INGREDIENT [Concomitant]
     Active Substance: UNSPECIFIED INGREDIENT
     Route: 065
  4. TAZOBACTAM/PIPERACILLIN HYDRATE [Concomitant]
     Indication: Large intestine perforation
     Route: 065
     Dates: start: 20241101, end: 20241108
  5. MEROPENEM [Concomitant]
     Active Substance: MEROPENEM
     Indication: Large intestine perforation
     Route: 065
     Dates: start: 20241111, end: 20241111
  6. CALCIUM CHLORIDE\POTASSIUM CHLORIDE\SODIUM ACETATE\SODIUM CHLORIDE [Concomitant]
     Active Substance: CALCIUM CHLORIDE\POTASSIUM CHLORIDE\SODIUM ACETATE\SODIUM CHLORIDE
     Indication: Large intestine perforation
     Route: 065
     Dates: end: 20241112
  7. PITRESSIN [Concomitant]
     Active Substance: VASOPRESSIN
     Indication: Large intestine perforation
     Route: 065
     Dates: end: 20241112
  8. SOLU-CORTEF [Concomitant]
     Active Substance: HYDROCORTISONE SODIUM SUCCINATE
     Indication: Large intestine perforation
     Route: 065
     Dates: end: 20241112
  9. FENTANYL [Concomitant]
     Active Substance: FENTANYL
     Indication: Large intestine perforation
     Route: 065
     Dates: end: 20241112
  10. NOREPINEPHRINE BITARTRATE [Concomitant]
     Active Substance: NOREPINEPHRINE BITARTRATE
     Indication: Large intestine perforation
     Route: 065
     Dates: end: 20241112
  11. GLUCOSE/INORGANIC SALTS COMBINED DRUG [Concomitant]
     Indication: Large intestine perforation
     Route: 065
     Dates: end: 20241112
  12. METRONIDAZOLE [Concomitant]
     Active Substance: METRONIDAZOLE
     Indication: Large intestine perforation
     Route: 065
     Dates: end: 20241112
  13. MICAFUNGIN SODIUM [Concomitant]
     Active Substance: MICAFUNGIN SODIUM
     Indication: Large intestine perforation
     Route: 065
     Dates: end: 20241112
  14. DEXPANTHENOL [Concomitant]
     Active Substance: DEXPANTHENOL
     Indication: Large intestine perforation
     Route: 065
     Dates: end: 20241112

REACTIONS (2)
  - Large intestine perforation [Fatal]
  - Septic shock [Fatal]

NARRATIVE: CASE EVENT DATE: 20241112
